FAERS Safety Report 10185619 (Version 1)
Quarter: 2014Q2

REPORT INFORMATION
  Report Type: Spontaneous
  Country: US (occurrence: None)
  Receive Date: 20140520
  Receipt Date: 20140520
  Transmission Date: 20141212
  Serious: Yes (Other)
  Sender: FDA-Public Use
  Company Number: None

PATIENT
  Age: 15 Year
  Sex: Female
  Weight: 44.91 kg

DRUGS (1)
  1. RIZATRIPTAN [Suspect]
     Indication: MIGRAINE
     Route: 048
     Dates: start: 20140425

REACTIONS (1)
  - Vision blurred [None]
